FAERS Safety Report 15868542 (Version 1)
Quarter: 2019Q1

REPORT INFORMATION
  Report Type: Spontaneous
  Country: FR (occurrence: FR)
  Receive Date: 20190125
  Receipt Date: 20190125
  Transmission Date: 20190417
  Serious: Yes (Hospitalization)
  Sender: FDA-Public Use
  Company Number: FR-JNJFOC-20190123890

PATIENT
  Age: 86 Year
  Sex: Female
  Weight: 82 kg

DRUGS (9)
  1. DICLOFENAC [Concomitant]
     Active Substance: DICLOFENAC
     Route: 065
  2. FLUINDIONE [Concomitant]
     Active Substance: FLUINDIONE
     Route: 065
  3. EXFORGE [Concomitant]
     Active Substance: AMLODIPINE BESYLATE\VALSARTAN
     Route: 065
  4. VERSATIS [Concomitant]
     Active Substance: LIDOCAINE
     Route: 065
  5. INEXIUM [Concomitant]
     Active Substance: ESOMEPRAZOLE
     Route: 065
  6. VOGALENE [Concomitant]
     Active Substance: METOPIMAZINE
     Route: 065
  7. DUROGESIC [Suspect]
     Active Substance: FENTANYL
     Indication: PAIN
     Route: 062
     Dates: start: 2016, end: 20180523
  8. LYRICA [Concomitant]
     Active Substance: PREGABALIN
     Route: 065
  9. STILNOX [Concomitant]
     Active Substance: ZOLPIDEM TARTRATE
     Route: 065

REACTIONS (2)
  - Disturbance in attention [Recovered/Resolved]
  - Dyspnoea [Recovered/Resolved]

NARRATIVE: CASE EVENT DATE: 20180523
